FAERS Safety Report 10142511 (Version 2)
Quarter: 2014Q2

REPORT INFORMATION
  Report Type: Spontaneous
  Country: DE (occurrence: DE)
  Receive Date: 20140430
  Receipt Date: 20140430
  Transmission Date: 20141212
  Serious: Yes (Other)
  Sender: FDA-Public Use
  Company Number: DE-ROCHE-1357951

PATIENT
  Age: 75 Year
  Sex: Female
  Weight: 83 kg

DRUGS (9)
  1. HERCEPTIN [Suspect]
     Indication: BREAST CANCER METASTATIC
     Dosage: LOADING DOSE
     Route: 042
     Dates: start: 20131030
  2. HERCEPTIN [Suspect]
     Route: 042
     Dates: start: 201311
  3. FASLODEX [Suspect]
     Indication: BREAST CANCER METASTATIC
     Route: 030
     Dates: start: 20131107
  4. VELMETIA [Concomitant]
     Route: 048
  5. CATAPRESAN [Concomitant]
     Route: 048
  6. AMLODIPIN [Concomitant]
     Route: 048
  7. SIMVABETA [Concomitant]
     Route: 048
  8. RAMILICH [Concomitant]
     Route: 048
  9. MARCUMAR [Concomitant]
     Route: 065

REACTIONS (2)
  - Rash maculo-papular [Recovered/Resolved]
  - Dermatitis [Recovered/Resolved]
